FAERS Safety Report 18140957 (Version 1)
Quarter: 2020Q3

REPORT INFORMATION
  Report Type: Spontaneous
  Country: US (occurrence: US)
  Receive Date: 20200812
  Receipt Date: 20200812
  Transmission Date: 20201103
  Serious: No
  Sender: FDA-Public Use
  Company Number: US-OTSUKA-2020_002353

PATIENT
  Sex: Male

DRUGS (10)
  1. ZYPREXA [Suspect]
     Active Substance: OLANZAPINE
     Indication: PRODUCT USED FOR UNKNOWN INDICATION
     Dosage: 10 MG AT BEDTIME
     Route: 065
     Dates: start: 2018
  2. REXULTI [Suspect]
     Active Substance: BREXPIPRAZOLE
     Dosage: 3 MG, QD
     Route: 065
     Dates: start: 20191125
  3. REXULTI [Suspect]
     Active Substance: BREXPIPRAZOLE
     Dosage: 1 MG, UNK
     Route: 065
  4. REXULTI [Suspect]
     Active Substance: BREXPIPRAZOLE
     Indication: SCHIZOAFFECTIVE DISORDER DEPRESSIVE TYPE
     Dosage: 0.5 MG, UNK
     Route: 065
     Dates: start: 201911
  5. REXULTI [Suspect]
     Active Substance: BREXPIPRAZOLE
     Dosage: 2 MG, UNK
     Route: 065
  6. REXULTI [Suspect]
     Active Substance: BREXPIPRAZOLE
     Dosage: 2 MG, UNK
     Route: 065
  7. REXULTI [Suspect]
     Active Substance: BREXPIPRAZOLE
     Dosage: 3 MG, 1 TABLET AT BEDTIME
     Route: 065
     Dates: start: 20191231
  8. REXULTI [Suspect]
     Active Substance: BREXPIPRAZOLE
     Dosage: 0.5 MG, QD (FOR 11 DAYS)
     Route: 065
     Dates: start: 20191216
  9. ZYPREXA [Suspect]
     Active Substance: OLANZAPINE
     Dosage: 5 MG ONE TABLET AT BEDTIME
     Route: 065
     Dates: start: 20191231
  10. REXULTI [Suspect]
     Active Substance: BREXPIPRAZOLE
     Dosage: 1 MG, UNK (FOR 4 DAYS)
     Route: 065
     Dates: start: 20191118

REACTIONS (6)
  - Sedation [Recovered/Resolved]
  - Injury [Unknown]
  - Insomnia [Recovered/Resolved]
  - Irritability [Unknown]
  - Drug intolerance [Unknown]
  - Product use in unapproved indication [Unknown]

NARRATIVE: CASE EVENT DATE: 2019
